FAERS Safety Report 6599137-0 (Version None)
Quarter: 2010Q1

REPORT INFORMATION
  Report Type: 
  Country: None (occurrence: None)
  Receive Date: 20100224
  Receipt Date: 20091221
  Transmission Date: 20100710
  Serious: No
  Sender: FDA-Public Use
  Company Number: US-BRISTOL-MYERS SQUIBB COMPANY-14891402

PATIENT
  Age: 69 Year
  Sex: Female

DRUGS (3)
  1. METFORMIN HCL [Suspect]
  2. MORPHINE SULFATE [Suspect]
  3. ASPIRIN [Suspect]

REACTIONS (2)
  - ADVERSE EVENT [None]
  - MALAISE [None]
